FAERS Safety Report 18386040 (Version 2)
Quarter: 2020Q4

REPORT INFORMATION
  Report Type: Spontaneous
  Country: JP (occurrence: JP)
  Receive Date: 20201015
  Receipt Date: 20201022
  Transmission Date: 20210114
  Serious: Yes (Hospitalization, Other)
  Sender: FDA-Public Use
  Company Number: JP-AMGEN-JPNSP2020160225

PATIENT
  Age: 8 Decade

DRUGS (1)
  1. VECTIBIX [Suspect]
     Active Substance: PANITUMUMAB
     Indication: COLON CANCER
     Dosage: 100 MILLIGRAM
     Route: 042

REACTIONS (3)
  - Colon cancer [Unknown]
  - Disease progression [Unknown]
  - Blood calcium decreased [Unknown]
